FAERS Safety Report 20485439 (Version 1)
Quarter: 2022Q1

REPORT INFORMATION
  Report Type: Spontaneous
  Country: CN (occurrence: CN)
  Receive Date: 20220217
  Receipt Date: 20220217
  Transmission Date: 20220423
  Serious: Yes (Other)
  Sender: FDA-Public Use
  Company Number: CN-FRESENIUS KABI-FK202201726

PATIENT
  Age: 80 Year
  Sex: Male
  Weight: 70 kg

DRUGS (2)
  1. INTRALIPID [Suspect]
     Active Substance: EGG PHOSPHOLIPIDS\GLYCERIN\SOYBEAN OIL
     Indication: Malnutrition
     Dosage: THE FORM OF ADMIN IS INJECTION IN SOURCES.
     Route: 041
     Dates: start: 20220210, end: 20220210
  2. VITAMINS NOS [Suspect]
     Active Substance: VITAMINS
     Indication: Malnutrition
     Route: 041
     Dates: start: 20220210, end: 20220210

REACTIONS (6)
  - Pruritus [Recovered/Resolved]
  - Macule [Recovered/Resolved]
  - Hyperhidrosis [Recovered/Resolved]
  - Chest discomfort [Recovered/Resolved]
  - Dyspnoea [Recovered/Resolved]
  - Eyelid oedema [Unknown]

NARRATIVE: CASE EVENT DATE: 20220210
